FAERS Safety Report 25778148 (Version 1)
Quarter: 2025Q3

REPORT INFORMATION
  Report Type: Spontaneous
  Country: US (occurrence: US)
  Receive Date: 20250909
  Receipt Date: 20250909
  Transmission Date: 20251020
  Serious: Yes (Hospitalization, Other)
  Sender: DR REDDYS
  Company Number: US-RDY-USA/2025/09/013490

PATIENT
  Age: 83 Year
  Sex: Female

DRUGS (6)
  1. DIVALPROEX SODIUM [Suspect]
     Active Substance: DIVALPROEX SODIUM
     Indication: Behaviour disorder
     Dosage: DIVALPROEX EXTENDED RELEASE 250 MG TWICE DAILY
  2. DONEPEZIL [Suspect]
     Active Substance: DONEPEZIL
     Indication: Memory impairment
     Dosage: DIVALPROEX EXTENDED RELEASE 250 MG TWICE DAILY
  3. CITALOPRAM [Suspect]
     Active Substance: CITALOPRAM
     Indication: Depression
     Dosage: AT BEDTIME
  4. CITALOPRAM [Suspect]
     Active Substance: CITALOPRAM
     Indication: Anxiety
  5. TRAZODONE [Suspect]
     Active Substance: TRAZODONE HYDROCHLORIDE
     Indication: Insomnia
  6. TRAZODONE [Suspect]
     Active Substance: TRAZODONE HYDROCHLORIDE

REACTIONS (4)
  - Anticonvulsant drug level increased [Recovering/Resolving]
  - Hyperammonaemia [Recovering/Resolving]
  - Delirium [Recovering/Resolving]
  - Product use in unapproved indication [Recovering/Resolving]
